FAERS Safety Report 23246894 (Version 1)
Quarter: 2023Q4

REPORT INFORMATION
  Report Type: Spontaneous
  Country: FR (occurrence: FR)
  Receive Date: 20231130
  Receipt Date: 20231130
  Transmission Date: 20240109
  Serious: Yes (Other)
  Sender: FDA-Public Use
  Company Number: None

PATIENT
  Age: 48 Year
  Sex: Female

DRUGS (2)
  1. ACETAMINOPHEN [Suspect]
     Active Substance: ACETAMINOPHEN
     Indication: Product used for unknown indication
     Dosage: 15 DOSAGE FORM, QD, 15 TABS/DAY
     Route: 048
     Dates: start: 202010
  2. CODEINE [Suspect]
     Active Substance: CODEINE
     Indication: Product used for unknown indication
     Dosage: 15 DOSAGE FORM, QD, 15 TABS/DAY
     Route: 048
     Dates: start: 202010

REACTIONS (1)
  - Drug dependence [Not Recovered/Not Resolved]
